FAERS Safety Report 13938118 (Version 2)
Quarter: 2017Q3

REPORT INFORMATION
  Report Type: Spontaneous
  Country: RO (occurrence: RO)
  Receive Date: 20170905
  Receipt Date: 20170913
  Transmission Date: 20171127
  Serious: Yes (Hospitalization)
  Sender: FDA-Public Use
  Company Number: RO-SA-2017SA158878

PATIENT
  Age: 56 Year
  Sex: Female

DRUGS (4)
  1. TERIFLUNOMIDE [Suspect]
     Active Substance: TERIFLUNOMIDE
     Indication: MULTIPLE SCLEROSIS
     Route: 065
  2. TELMISARTAN. [Concomitant]
     Active Substance: TELMISARTAN
  3. INDAPAMIDE. [Concomitant]
     Active Substance: INDAPAMIDE
  4. ATORVASTATIN [Concomitant]
     Active Substance: ATORVASTATIN

REACTIONS (7)
  - Headache [Recovered/Resolved]
  - Photophobia [Recovered/Resolved]
  - Vomiting [Recovered/Resolved]
  - Tachycardia [Recovered/Resolved]
  - Diastolic dysfunction [Recovered/Resolved]
  - Blood pressure increased [Recovered/Resolved]
  - Hypertensive encephalopathy [Recovered/Resolved]
